FAERS Safety Report 17766194 (Version 1)
Quarter: 2020Q2

REPORT INFORMATION
  Report Type: Spontaneous
  Country: FR (occurrence: FR)
  Receive Date: 20200511
  Receipt Date: 20200511
  Transmission Date: 20200714
  Serious: Yes (Life-Threatening, Other)
  Sender: FDA-Public Use
  Company Number: FR-JNJFOC-20191040179

PATIENT
  Age: 46 Year
  Sex: Female
  Weight: 48 kg

DRUGS (3)
  1. METOCLOPRAMIDE. [Suspect]
     Active Substance: METOCLOPRAMIDE
     Indication: PRODUCT USED FOR UNKNOWN INDICATION
     Dosage: 400 MG, ONCE
     Route: 048
     Dates: start: 20190907, end: 20190907
  2. TRAMADOL HYDROCHLORIDE. [Suspect]
     Active Substance: TRAMADOL HYDROCHLORIDE
     Indication: PRODUCT USED FOR UNKNOWN INDICATION
     Dosage: 9 G, ONCE
     Route: 048
     Dates: start: 20190907, end: 20190907
  3. DIAZEPAM. [Suspect]
     Active Substance: DIAZEPAM
     Dosage: 300 MG, ONCE
     Route: 048
     Dates: start: 20190907, end: 20190907

REACTIONS (3)
  - Toxicity to various agents [Unknown]
  - Coma [Recovered/Resolved]
  - Overdose [Recovered/Resolved]

NARRATIVE: CASE EVENT DATE: 20190907
